FAERS Safety Report 18115265 (Version 2)
Quarter: 2020Q3

REPORT INFORMATION
  Report Type: Spontaneous
  Country: US (occurrence: US)
  Receive Date: 20200805
  Receipt Date: 20200810
  Transmission Date: 20201103
  Serious: No
  Sender: FDA-Public Use
  Company Number: US-ALLERGAN-1929967US

PATIENT
  Sex: Female

DRUGS (5)
  1. CELEXA [Suspect]
     Active Substance: CITALOPRAM HYDROBROMIDE
     Indication: DEPRESSION
     Dosage: 40 MG, QD
     Route: 048
     Dates: start: 2011
  2. QUETIAPINE. [Suspect]
     Active Substance: QUETIAPINE
     Indication: INSOMNIA
     Dosage: 100 MG, QHS
     Route: 048
     Dates: start: 2015
  3. NICORETTE [Concomitant]
     Active Substance: NICOTINE
     Indication: TOBACCO USER
     Dosage: 15MG CARTRIDGE INHALE IT GOES INTO A HOLDER EVERY 20?30 MINUTES FOR FEW MINUTES
     Route: 055
  4. GABAPENTIN. [Suspect]
     Active Substance: GABAPENTIN
     Indication: NEURALGIA
  5. GABAPENTIN. [Suspect]
     Active Substance: GABAPENTIN
     Indication: AFFECTIVE DISORDER
     Dosage: 400 MG, Q8HR
     Route: 048
     Dates: start: 2011

REACTIONS (1)
  - Dyskinesia [Unknown]
